FAERS Safety Report 24997267 (Version 4)
Quarter: 2025Q2

REPORT INFORMATION
  Report Type: Spontaneous
  Country: US (occurrence: US)
  Receive Date: 20250221
  Receipt Date: 20250529
  Transmission Date: 20250717
  Serious: Yes (Other)
  Sender: BRISTOL-MYERS SQUIBB COMPANY
  Company Number: US-BRISTOL-MYERS SQUIBB COMPANY-2025-026969

PATIENT
  Age: 66 Year
  Sex: Female

DRUGS (3)
  1. LENALIDOMIDE [Suspect]
     Active Substance: LENALIDOMIDE
     Indication: Plasma cell myeloma
     Route: 048
  2. LENALIDOMIDE [Suspect]
     Active Substance: LENALIDOMIDE
     Route: 048
  3. DARZALEX FASPRO [DARATUMUMAB] [Concomitant]
     Indication: Product used for unknown indication

REACTIONS (8)
  - Oedema peripheral [Not Recovered/Not Resolved]
  - Vitreous floaters [Not Recovered/Not Resolved]
  - Product administration interrupted [Unknown]
  - Photopsia [Not Recovered/Not Resolved]
  - Blood pressure decreased [Recovering/Resolving]
  - Cataract [Not Recovered/Not Resolved]
  - Neuropathy peripheral [Unknown]
  - Spinal fracture [Recovering/Resolving]

NARRATIVE: CASE EVENT DATE: 20250101
